FAERS Safety Report 14867538 (Version 3)
Quarter: 2018Q3

REPORT INFORMATION
  Report Type: Spontaneous
  Country: FR (occurrence: FR)
  Receive Date: 20180508
  Receipt Date: 20180726
  Transmission Date: 20181010
  Serious: Yes (Other)
  Sender: FDA-Public Use
  Company Number: PHHY2017FR159192

PATIENT
  Age: 89 Year
  Sex: Female
  Weight: 55 kg

DRUGS (14)
  1. DIGOXIN SANDOZ [Suspect]
     Active Substance: DIGOXIN
     Indication: ATRIAL FIBRILLATION
     Dosage: 0.5 DF, UNK
     Route: 042
  2. AMIODARONE [Interacting]
     Active Substance: AMIODARONE
     Indication: PRODUCT USED FOR UNKNOWN INDICATION
     Dosage: 100 MG, BID
     Route: 065
     Dates: start: 20000101, end: 20170111
  3. APIXABAN [Interacting]
     Active Substance: APIXABAN
     Dosage: 2.5 MG, BID
     Route: 048
     Dates: start: 20170117
  4. DIGOXIN SANDOZ [Interacting]
     Active Substance: DIGOXIN
     Dosage: 0.5 UNK, UNK
     Route: 042
  5. APIXABAN [Interacting]
     Active Substance: APIXABAN
     Indication: ATRIAL FIBRILLATION
  6. CORDARONE [Interacting]
     Active Substance: AMIODARONE HYDROCHLORIDE
     Indication: CONDUCTION DISORDER
  7. DIGOXIN SANDOZ [Interacting]
     Active Substance: DIGOXIN
     Dosage: UNK
     Route: 042
  8. CORDAREX [Interacting]
     Active Substance: AMIODARONE
     Indication: ATRIAL FIBRILLATION
     Dosage: 100 MG, QD
     Route: 065
     Dates: start: 2000
  9. DIGOXIN SANDOZ [Interacting]
     Active Substance: DIGOXIN
     Dosage: 0.125 MG, QD
     Route: 048
     Dates: start: 20170111, end: 20170126
  10. CORDAREX [Interacting]
     Active Substance: AMIODARONE
     Indication: CONDUCTION DISORDER
  11. APIXABAN [Interacting]
     Active Substance: APIXABAN
     Indication: CEREBROVASCULAR ACCIDENT PROPHYLAXIS
  12. FUROSEMIDE. [Suspect]
     Active Substance: FUROSEMIDE
     Indication: CARDIAC FAILURE
     Dosage: UNK
     Route: 065
  13. APIXABAN [Interacting]
     Active Substance: APIXABAN
     Indication: CEREBROVASCULAR ACCIDENT PROPHYLAXIS
  14. CORDARONE [Interacting]
     Active Substance: AMIODARONE HYDROCHLORIDE
     Indication: PRODUCT USED FOR UNKNOWN INDICATION
     Dosage: UNK
     Route: 065

REACTIONS (8)
  - Orthopnoea [Unknown]
  - Drug interaction [Unknown]
  - Toxicity to various agents [Unknown]
  - Dyspnoea [Unknown]
  - Overdose [Recovered/Resolved]
  - Drug level increased [Unknown]
  - Tachyarrhythmia [Unknown]
  - Cardiac failure [Unknown]
